FAERS Safety Report 23378448 (Version 1)
Quarter: 2024Q1

REPORT INFORMATION
  Report Type: Spontaneous
  Country: GB (occurrence: GB)
  Receive Date: 20240108
  Receipt Date: 20240108
  Transmission Date: 20240410
  Serious: Yes (Other)
  Sender: FDA-Public Use
  Company Number: None

PATIENT
  Age: 64 Year
  Sex: Female
  Weight: 112.5 kg

DRUGS (6)
  1. DOXYCYCLINE [Suspect]
     Active Substance: DOXYCYCLINE
     Indication: Lower respiratory tract infection
     Dosage: UNK, (ONE TO BE TAKEN TWICE A DAY)
     Route: 065
     Dates: start: 20231227
  2. AMOXICILLIN [Concomitant]
     Active Substance: AMOXICILLIN
     Dosage: UNK, (TWO TO BE TAKEN THREE TIMES A DAY)
     Route: 065
     Dates: start: 20231227
  3. CLARITHROMYCIN [Concomitant]
     Active Substance: CLARITHROMYCIN
     Dosage: UNK, (ONE TO BE TAKEN TWICE A DAY)
     Route: 065
     Dates: start: 20231219
  4. RILTOZINAMERAN\TOZINAMERAN [Concomitant]
     Active Substance: RILTOZINAMERAN\TOZINAMERAN
     Dosage: 0.3 MILLILITER (0.3 ML INTRAMUSCULAR)
     Route: 065
     Dates: start: 20231031
  5. DOXYCYCLINE [Concomitant]
     Active Substance: DOXYCYCLINE
     Indication: Lower respiratory tract infection
     Dosage: UNK, (ONE TO BE TAKEN TWICE A DAY)
     Route: 065
     Dates: start: 20231227
  6. HYDROXOCOBALAMIN [Concomitant]
     Active Substance: HYDROXOCOBALAMIN
     Indication: Adverse drug reaction
     Dosage: UNK, (AS DIRECTED)
     Route: 065
     Dates: start: 20231214

REACTIONS (2)
  - Dyspnoea at rest [Recovered/Resolved]
  - Erythema [Recovered/Resolved]

NARRATIVE: CASE EVENT DATE: 20231227
